FAERS Safety Report 21938160 (Version 1)
Quarter: 2023Q1

REPORT INFORMATION
  Report Type: Spontaneous
  Country: US (occurrence: US)
  Receive Date: 20230201
  Receipt Date: 20230201
  Transmission Date: 20230417
  Serious: No
  Sender: FDA-Public Use
  Company Number: US-MYLANLABS-2023M1006412

PATIENT
  Age: 39 Year
  Sex: Female

DRUGS (1)
  1. METHYLPHENIDATE [Suspect]
     Active Substance: METHYLPHENIDATE
     Indication: Attention deficit hyperactivity disorder
     Dosage: 3.3 MILLIGRAM, QH
     Route: 062
     Dates: start: 20230117

REACTIONS (2)
  - Product adhesion issue [Unknown]
  - Wrong technique in product usage process [Unknown]

NARRATIVE: CASE EVENT DATE: 20230117
